FAERS Safety Report 5088160-3 (Version None)
Quarter: 2006Q3

REPORT INFORMATION
  Report Type: 
  Country: None (occurrence: None)
  Receive Date: 20060824
  Receipt Date: 20060815
  Transmission Date: 20061208
  Serious: Yes (Hospitalization)
  Sender: FDA-Public Use
  Company Number: FR-ABBOTT-06P-056-0340725-00

PATIENT
  Sex: Female
  Weight: 80 kg

DRUGS (4)
  1. DEPAKOTE [Suspect]
     Indication: DRUG USE FOR UNKNOWN INDICATION
     Route: 048
     Dates: start: 20060703, end: 20060712
  2. DEPAKOTE [Suspect]
     Route: 048
     Dates: start: 20060626, end: 20060702
  3. DEPAKOTE [Suspect]
     Route: 048
     Dates: start: 20060713
  4. RISPERIDONE [Concomitant]
     Indication: DRUG USE FOR UNKNOWN INDICATION
     Route: 048

REACTIONS (3)
  - MICROCYTOSIS [None]
  - NEUTROPENIA [None]
  - PLATELET COUNT DECREASED [None]
